FAERS Safety Report 16635926 (Version 1)
Quarter: 2019Q3

REPORT INFORMATION
  Report Type: Spontaneous
  Country: US (occurrence: US)
  Receive Date: 20190725
  Receipt Date: 20190725
  Transmission Date: 20191004
  Serious: Yes (Hospitalization)
  Sender: FDA-Public Use
  Company Number: None

PATIENT
  Age: 41 Year
  Sex: Female
  Weight: 63 kg

DRUGS (3)
  1. B12 2500MCG (1 DAY) [Concomitant]
  2. XANAX [Concomitant]
     Active Substance: ALPRAZOLAM
  3. FERAHEME [Suspect]
     Active Substance: FERUMOXYTOL NON-STOICHIOMETRIC MAGNETITE
     Indication: IRON DEFICIENCY ANAEMIA
     Route: 042
     Dates: start: 20190717, end: 20190717

REACTIONS (6)
  - Hypotension [None]
  - Bradycardia [None]
  - Dizziness [None]
  - Syncope [None]
  - Oxygen saturation decreased [None]
  - Back pain [None]

NARRATIVE: CASE EVENT DATE: 20190717
